FAERS Safety Report 6685520-1 (Version None)
Quarter: 2010Q2

REPORT INFORMATION
  Report Type: 
  Country: None (occurrence: None)
  Receive Date: 20100419
  Receipt Date: 20100409
  Transmission Date: 20101027
  Serious: No
  Sender: FDA-Public Use
  Company Number: US-BIOGENIDEC-2010BI011757

PATIENT
  Age: 45 Year
  Sex: Female

DRUGS (1)
  1. TYSABRI [Suspect]
     Indication: MULTIPLE SCLEROSIS
     Route: 042
     Dates: start: 20100405

REACTIONS (12)
  - ABDOMINAL PAIN UPPER [None]
  - GENERAL SYMPTOM [None]
  - INFLUENZA LIKE ILLNESS [None]
  - LYMPH NODE PAIN [None]
  - LYMPHADENOPATHY [None]
  - NAUSEA [None]
  - NEURALGIA [None]
  - OROPHARYNGEAL PAIN [None]
  - THIRST [None]
  - THROAT IRRITATION [None]
  - VOMITING [None]
  - VULVOVAGINAL MYCOTIC INFECTION [None]
